FAERS Safety Report 10064097 (Version 1)
Quarter: 2014Q1

REPORT INFORMATION
  Report Type: Spontaneous
  Country: PT (occurrence: None)
  Receive Date: 20140131
  Receipt Date: 20140131
  Transmission Date: 20141002
  Serious: Yes (Death)
  Sender: FDA-Public Use
  Company Number: 152490

PATIENT
  Age: 32 Year
  Sex: Male

DRUGS (7)
  1. HALOPERIDOL LACTATE [Suspect]
     Indication: COMPLETED SUICIDE
  2. OLANZAPINE [Concomitant]
  3. QUETIAPINE [Concomitant]
  4. FLUOXETINE [Concomitant]
  5. PAROXETINE [Concomitant]
  6. BROMAZEPAM [Concomitant]
  7. LORAZEPAM [Concomitant]

REACTIONS (4)
  - Toxicity to various agents [None]
  - Intentional overdose [None]
  - Acute pulmonary oedema [None]
  - Angiopathy [None]
